FAERS Safety Report 10618833 (Version 5)
Quarter: 2015Q1

REPORT INFORMATION
  Report Type: Spontaneous
  Country: JP (occurrence: None)
  Receive Date: 20141125
  Receipt Date: 20150310
  Transmission Date: 20150720
  Serious: Yes (Death, Hospitalization, Other)
  Sender: FDA-Public Use
  Company Number: AXC-2014-000715

PATIENT
  Age: 82 Year
  Sex: Male
  Weight: 48 kg

DRUGS (23)
  1. STOMARCON (FAMOTIDINE) [Concomitant]
  2. GLUCOSE (GLUCOSE) [Concomitant]
  3. SOLCOSERYL (BLOOD, CALF, DEPROT, LMW PORTION) [Concomitant]
  4. GASTER [Concomitant]
     Active Substance: FAMOTIDINE
  5. DALACIN (CLINDAMYCIN HYDROCHLORIDE) [Concomitant]
  6. ANHIBA (PARACETAMOL) [Concomitant]
  7. EMPECID (CLOTRIMAZOLE) [Concomitant]
  8. TELEMINSOFT (BISACODYL) [Concomitant]
  9. ISOTONIC SODIUM CHLORIDE SOLUTION (SODIUM CHLORIDE) [Concomitant]
  10. ELNEOPA NO.1 (AMINO ACIDS NOS W/COPPER/ELECTROLYTES NOS/GLU) (MIXED AMINO ACID_CARBOHYDRATE_ELECTROLYTE_VITAMIN COMBINE) [Concomitant]
  11. POTACOL R (CALCIUM CHLORIDE DIHYDRATE, MALTOSE, POTASSIUM CHLORIDE, SODIUM CHLORIDE, SODIUM LACTATE) [Concomitant]
  12. ESLAX (ROCURONIUM BROMIDE) [Concomitant]
  13. VOLTAREN [Concomitant]
     Active Substance: DICLOFENAC SODIUM
  14. URSODEOXYCHOLIC ACID [Suspect]
     Active Substance: URSODIOL
     Indication: ALCOHOLIC LIVER DISEASE
     Route: 048
     Dates: start: 20140805, end: 20141104
  15. OPALMON [Suspect]
     Active Substance: LIMAPROST
     Indication: ARTERIAL OCCLUSIVE DISEASE
     Dosage: 1 DF, TID, ORAL
     Route: 048
     Dates: start: 201408
  16. LASIX [Concomitant]
     Active Substance: FUROSEMIDE
  17. GENTACIN (GENTAMICIN SULFATE) [Concomitant]
     Active Substance: GENTAMICIN SULFATE
  18. PREDNISOLONE (PREDNISOLONE) [Concomitant]
     Active Substance: PREDNISOLONE
  19. ISODINE SUGAR (POVIDONE-IODINE, SUCROSE) [Concomitant]
  20. SOLDEM 3A (CARBOHYDRATES NOS, POTASSIUM CHLORIDE, SODIIUM CHLORIDE SODIUM LACTATE) [Concomitant]
  21. KAKKON-TO [Suspect]
     Active Substance: HERBS\ROOTS
     Indication: NASOPHARYNGITIS
     Route: 048
     Dates: start: 20141030, end: 20141106
  22. SODIUM CHLORIDE (SODIIUM CHLORIDE) [Concomitant]
  23. SOLITA-T1 (GLUCOSE, SODIIUM CHLORIDE, SODIUM LACTATE) [Concomitant]

REACTIONS (10)
  - Transient ischaemic attack [None]
  - Acute coronary syndrome [None]
  - Haemodynamic instability [None]
  - Altered state of consciousness [None]
  - Interstitial lung disease [None]
  - Respiratory failure [None]
  - Inflammation [None]
  - Dehydration [None]
  - Pneumonia [None]
  - Supraventricular tachycardia [None]

NARRATIVE: CASE EVENT DATE: 20141101
